FAERS Safety Report 8201046-8 (Version None)
Quarter: 2012Q1

REPORT INFORMATION
  Report Type: 
  Country: None (occurrence: None)
  Receive Date: 20120312
  Receipt Date: 20120227
  Transmission Date: 20120608
  Serious: No
  Sender: FDA-Public Use
  Company Number: US-JNJFOC-20120300559

PATIENT
  Sex: Female
  Weight: 48.99 kg

DRUGS (6)
  1. ATIVAN [Concomitant]
     Indication: ANXIETY
     Route: 065
  2. CLOZARIL [Concomitant]
     Indication: SCHIZOPHRENIA
     Route: 048
     Dates: start: 19910101
  3. INVEGA [Suspect]
     Indication: SCHIZOPHRENIA
     Route: 048
     Dates: start: 20120206
  4. INVEGA [Suspect]
     Route: 048
  5. ARTANE [Concomitant]
     Indication: RELAXATION THERAPY
     Route: 048
  6. INVEGA [Suspect]
     Route: 048
     Dates: end: 20120206

REACTIONS (2)
  - MENTAL DISORDER [None]
  - ANXIETY [None]
